FAERS Safety Report 8153814-9 (Version None)
Quarter: 2012Q1

REPORT INFORMATION
  Report Type: 
  Country: None (occurrence: None)
  Receive Date: 20120221
  Receipt Date: 20120216
  Transmission Date: 20120608
  Serious: Yes (Hospitalization)
  Sender: FDA-Public Use
  Company Number: JP-GLAXOSMITHKLINE-B0782475A

PATIENT
  Sex: Male

DRUGS (9)
  1. VALTREX [Suspect]
     Indication: HERPES ZOSTER
     Dosage: 1500MG PER DAY
     Route: 048
     Dates: start: 20111213, end: 20111215
  2. WARFARIN SODIUM [Suspect]
     Indication: THROMBOSIS
     Dosage: 1MG PER DAY
     Route: 048
  3. EVIPROSTAT [Suspect]
     Indication: BENIGN PROSTATIC HYPERPLASIA
     Dosage: 3IUAX PER DAY
     Route: 048
  4. CLARITHROMYCIN [Suspect]
     Indication: CHRONIC OBSTRUCTIVE PULMONARY DISEASE
     Dosage: 200MG PER DAY
     Route: 048
  5. DIFLUNISAL [Concomitant]
     Indication: HYPERTENSION
     Dosage: 1IUAX PER DAY
     Route: 048
     Dates: end: 20120116
  6. LANSOPRAZOLE [Suspect]
     Indication: GASTRIC ULCER
     Dosage: 15MG PER DAY
     Route: 048
  7. HOKUNALIN [Suspect]
     Route: 065
  8. MUCODYNE [Suspect]
     Indication: CHRONIC OBSTRUCTIVE PULMONARY DISEASE
     Dosage: 1500MG PER DAY
     Route: 048
  9. EBRANTIL [Concomitant]
     Indication: BENIGN PROSTATIC HYPERPLASIA
     Dosage: 30MG PER DAY
     Route: 048

REACTIONS (12)
  - BLOOD UREA INCREASED [None]
  - BLOOD CREATININE INCREASED [None]
  - FALL [None]
  - TONIC CONVULSION [None]
  - ALTERED STATE OF CONSCIOUSNESS [None]
  - C-REACTIVE PROTEIN INCREASED [None]
  - AZOTAEMIA [None]
  - URINARY TRACT INFECTION [None]
  - ENCEPHALOPATHY [None]
  - LOGORRHOEA [None]
  - ABNORMAL BEHAVIOUR [None]
  - DYSARTHRIA [None]
